FAERS Safety Report 7705844-6 (Version None)
Quarter: 2011Q3

REPORT INFORMATION
  Report Type: 
  Country: None (occurrence: None)
  Receive Date: 20110824
  Receipt Date: 20110818
  Transmission Date: 20111222
  Serious: Yes (Hospitalization)
  Sender: FDA-Public Use
  Company Number: CA-ABBOTT-11P-028-0848071-00

PATIENT
  Sex: Female
  Weight: 74.002 kg

DRUGS (24)
  1. ALBUTEROL [Concomitant]
     Indication: LUNG DISORDER
     Route: 055
     Dates: start: 20110501
  2. PMS-AMLODIPINE [Concomitant]
     Indication: HYPERTENSION
     Dosage: ROUTE: JEJUNAL FEEDING
     Dates: start: 19970101
  3. ALVESCO [Concomitant]
     Indication: LUNG DISORDER
     Dosage: 800MG DAILY, 200 4 IN 1 DAY
     Route: 055
  4. REMERON [Concomitant]
     Indication: SLEEP DISORDER THERAPY
     Route: 048
     Dates: start: 20080101
  5. ATIVAN [Concomitant]
     Indication: SLEEP DISORDER THERAPY
     Route: 048
     Dates: start: 20010101
  6. SINUS RINSE [Concomitant]
     Indication: SINUS DISORDER
     Route: 045
     Dates: start: 20101014
  7. SYMBICORT [Concomitant]
     Indication: LUNG DISORDER
     Route: 055
     Dates: start: 20080101
  8. PULMOZYME [Concomitant]
     Indication: LUNG DISORDER
     Route: 055
     Dates: start: 20110501
  9. SINGULAIR [Concomitant]
     Indication: LUNG DISORDER
     Dosage: ROUTE: JEJUNAL FEEDING
     Dates: start: 20050101
  10. BRICANYL [Concomitant]
     Indication: LUNG DISORDER
     Route: 055
     Dates: start: 20100913
  11. HUMIRA [Suspect]
     Indication: CROHN'S DISEASE
     Route: 058
     Dates: start: 20100804, end: 20110601
  12. ISOSORBIDE DINITRATE [Concomitant]
     Indication: OESOPHAGEAL STENOSIS
     Dosage: DOSE UNKNOWN.   ROUTE: JEJUNAL FEEDING
     Dates: start: 20100401
  13. RIVASA [Concomitant]
     Indication: HYPERTENSION
     Dosage: ROUTE: JEJUNAL FEEDING
     Route: 048
     Dates: start: 20080101
  14. SPIRIVA [Concomitant]
     Indication: LUNG DISORDER
     Route: 055
     Dates: start: 20110501
  15. TEVA-ATORVASTATIN [Concomitant]
     Indication: BLOOD CHOLESTEROL INCREASED
     Dosage: JEJUNAL FEEDING
     Dates: start: 19960101
  16. VITAMIN D [Concomitant]
     Indication: BILIARY CIRRHOSIS PRIMARY
     Dosage: ROUTE: JEJUNAL FEEDING
     Dates: start: 19950101
  17. TEARS PLUS [Concomitant]
     Indication: SJOGREN'S SYNDROME
     Route: 047
     Dates: start: 20110601
  18. ACETAMINOPHEN [Concomitant]
     Indication: OESOPHAGEAL STENOSIS
     Dosage: JEJUNAL FEEDING
  19. NEXIUM [Concomitant]
     Indication: GASTROOESOPHAGEAL REFLUX DISEASE
     Dosage: 80MG DAILY, ROUTE: JEJUNAL FEEDING
     Dates: start: 19960101
  20. SALAGEN [Concomitant]
     Indication: SJOGREN'S SYNDROME
     Dosage: 15MG DAILY, 5MG 3 IN 1 D,JEJUNAL FEEDING
     Dates: start: 20110601
  21. NASONEX [Concomitant]
     Indication: LUNG DISORDER
     Dosage: 100MCG DAILY, 50MCG 2 IN 1 DAY
     Route: 055
     Dates: start: 20101001
  22. URSO 250 [Concomitant]
     Indication: BILIARY CIRRHOSIS PRIMARY
     Dosage: 1000MG DAILY, ROUTE: JEJUNAL FEEDING
     Dates: start: 19950101
  23. PMS-METOCLOPRAMIDE [Concomitant]
     Indication: PROPHYLAXIS OF NAUSEA AND VOMITING
     Dosage: JEJUNAL FEEDING
     Dates: start: 20110601
  24. TEVA-PREDNISONE [Concomitant]
     Indication: LUNG DISORDER
     Dosage: JEJUNAL FEEDING
     Dates: start: 20101022

REACTIONS (4)
  - DYSPHAGIA [None]
  - DRUG INEFFECTIVE [None]
  - ORAL LICHEN PLANUS [None]
  - INFLAMMATORY BOWEL DISEASE [None]
